FAERS Safety Report 6775624-7 (Version None)
Quarter: 2010Q2

REPORT INFORMATION
  Report Type: 
  Country: None (occurrence: None)
  Receive Date: 20100617
  Receipt Date: 20100608
  Transmission Date: 20101027
  Serious: Yes (Other)
  Sender: FDA-Public Use
  Company Number: US-BAYER-201011600NA

PATIENT
  Age: 57 Year
  Sex: Female
  Weight: 50 kg

DRUGS (2)
  1. AVELOX [Suspect]
     Indication: ACUTE SINUSITIS
     Dosage: TOTAL DAILY DOSE: 400 MG  UNIT DOSE: 400 MG
     Route: 048
     Dates: start: 20100107, end: 20100109
  2. COZAAR [Concomitant]
     Route: 065
     Dates: start: 20020227

REACTIONS (5)
  - DIARRHOEA [None]
  - HALLUCINATION [None]
  - NIGHTMARE [None]
  - PAIN IN JAW [None]
  - VOMITING [None]
